FAERS Safety Report 12901120 (Version 3)
Quarter: 2017Q1

REPORT INFORMATION
  Report Type: Spontaneous
  Country: US (occurrence: US)
  Receive Date: 20161101
  Receipt Date: 20170214
  Transmission Date: 20170428
  Serious: No
  Sender: FDA-Public Use
  Company Number: US-CELGENEUS-USA-2016106421

PATIENT
  Age: 88 Year
  Sex: Female
  Weight: 69.92 kg

DRUGS (11)
  1. VITAMIN D3 [Concomitant]
     Active Substance: CHOLECALCIFEROL
     Indication: PRODUCT USED FOR UNKNOWN INDICATION
     Route: 065
  2. BILBERRY [Concomitant]
     Active Substance: BILBERRY
     Indication: PRODUCT USED FOR UNKNOWN INDICATION
     Dosage: 100MG
     Route: 048
  3. LIPITOR [Concomitant]
     Active Substance: ATORVASTATIN CALCIUM
     Indication: PRODUCT USED FOR UNKNOWN INDICATION
     Dosage: 10MG
     Route: 048
  4. SYNTHROID [Concomitant]
     Active Substance: LEVOTHYROXINE SODIUM
     Indication: PRODUCT USED FOR UNKNOWN INDICATION
     Dosage: 50MC
     Route: 048
  5. INTEGRA [Concomitant]
     Active Substance: DIETARY SUPPLEMENT
     Indication: PRODUCT USED FOR UNKNOWN INDICATION
     Route: 065
  6. COQ10 [Concomitant]
     Active Substance: UBIDECARENONE
     Indication: PRODUCT USED FOR UNKNOWN INDICATION
     Route: 065
  7. CALCIUM 600 + D3 [Concomitant]
     Indication: PRODUCT USED FOR UNKNOWN INDICATION
     Route: 065
  8. MULTIVITAMINS [Concomitant]
     Active Substance: VITAMINS
     Indication: PRODUCT USED FOR UNKNOWN INDICATION
     Route: 065
  9. REVLIMID [Suspect]
     Active Substance: LENALIDOMIDE
     Dosage: 5MG
     Route: 048
     Dates: start: 201210
  10. REVLIMID [Suspect]
     Active Substance: LENALIDOMIDE
     Indication: MYELODYSPLASTIC SYNDROME
     Dosage: 10MG
     Route: 048
     Dates: start: 201209
  11. REVLIMID [Suspect]
     Active Substance: LENALIDOMIDE
     Dosage: 5MG
     Route: 048
     Dates: start: 20130122

REACTIONS (2)
  - Blood iron decreased [Recovered/Resolved]
  - Anaemia [Recovered/Resolved]

NARRATIVE: CASE EVENT DATE: 201609
